FAERS Safety Report 8108287-9 (Version None)
Quarter: 2012Q1

REPORT INFORMATION
  Report Type: 
  Country: None (occurrence: None)
  Receive Date: 20120202
  Receipt Date: 20120110
  Transmission Date: 20120608
  Serious: No
  Sender: FDA-Public Use
  Company Number: US-AMGEN-USASP2012001793

PATIENT
  Age: 64 Year
  Sex: Male

DRUGS (1)
  1. ENBREL [Suspect]
     Indication: RHEUMATOID ARTHRITIS
     Dosage: 50 MG, QWK
     Dates: start: 20101001, end: 20120105

REACTIONS (7)
  - EPISTAXIS [None]
  - INSOMNIA [None]
  - FATIGUE [None]
  - DRUG INEFFECTIVE [None]
  - SINUSITIS [None]
  - PRODUCTIVE COUGH [None]
  - MUSCLE SPASMS [None]
